FAERS Safety Report 25829343 (Version 2)
Quarter: 2025Q3

REPORT INFORMATION
  Report Type: Spontaneous
  Country: EU (occurrence: EU)
  Receive Date: 20250922
  Receipt Date: 20250930
  Transmission Date: 20251021
  Serious: Yes (Disabling, Other)
  Sender: AUROBINDO
  Company Number: EU-AUROBINDO-AUR-APL-2025-046882

PATIENT
  Age: 39 Year
  Sex: Female

DRUGS (6)
  1. DROSPIRENONE\ETHINYL ESTRADIOL [Suspect]
     Active Substance: DROSPIRENONE\ETHINYL ESTRADIOL
     Indication: Sjogren^s syndrome
     Route: 065
  2. DROSPIRENONE\ETHINYL ESTRADIOL [Suspect]
     Active Substance: DROSPIRENONE\ETHINYL ESTRADIOL
     Indication: Oral contraception
  3. HYDROXYCHLOROQUINE [Suspect]
     Active Substance: HYDROXYCHLOROQUINE
     Indication: Sjogren^s syndrome
     Route: 065
     Dates: start: 20180707
  4. AZATHIOPRINE [Suspect]
     Active Substance: AZATHIOPRINE
     Indication: Sjogren^s syndrome
     Route: 065
  5. PREDNISOLONE [Suspect]
     Active Substance: PREDNISOLONE
     Indication: Sjogren^s syndrome
     Route: 065
  6. ACETAMINOPHEN\CAFFEINE [Concomitant]
     Active Substance: ACETAMINOPHEN\CAFFEINE
     Indication: Migraine
     Route: 065

REACTIONS (1)
  - Porphyria non-acute [Recovered/Resolved]
